FAERS Safety Report 4365810-8 (Version None)
Quarter: 2004Q2

REPORT INFORMATION
  Report Type: 
  Country: None (occurrence: None)
  Receive Date: 20040520
  Receipt Date: 20040506
  Transmission Date: 20050107
  Serious: Yes (Death)
  Sender: FDA-Public Use
  Company Number: 2004S1000081

PATIENT
  Age: 65 Year
  Sex: Male
  Weight: 75 kg

DRUGS (19)
  1. CUBICIN [Suspect]
     Indication: STAPHYLOCOCCAL SEPSIS
     Dosage: 4 MG/KG; QD; IV
     Route: 042
     Dates: start: 20040330, end: 20040402
  2. AZACTAM [Concomitant]
  3. RIFAMPIN [Concomitant]
  4. DIFLUCAN [Concomitant]
  5. NEUPOGEN [Concomitant]
  6. MITOXANTRONE [Concomitant]
  7. ETOPOSIDE [Concomitant]
  8. CEFEPIME [Concomitant]
  9. TOBRAMYCIN [Concomitant]
  10. VANCOMYCIN [Concomitant]
  11. SYNERCID [Concomitant]
  12. ARA-C [Concomitant]
  13. ACTOS [Concomitant]
  14. AMARYL [Concomitant]
  15. METFORMIN HCL [Concomitant]
  16. PREVACID [Concomitant]
  17. CIPROFLOXACIN [Concomitant]
  18. AUGMENTIN [Concomitant]
  19. MITOXANTRONE [Concomitant]

REACTIONS (9)
  - APNOEA [None]
  - BLOOD CREATINE INCREASED [None]
  - BLOOD UREA INCREASED [None]
  - CARDIAC DISORDER [None]
  - GENERALISED OEDEMA [None]
  - HYPOKALAEMIA [None]
  - PULSE ABSENT [None]
  - SUDDEN DEATH [None]
  - URINARY RETENTION [None]
